FAERS Safety Report 17417470 (Version 1)
Quarter: 2020Q1

REPORT INFORMATION
  Report Type: Spontaneous
  Country: GB (occurrence: GB)
  Receive Date: 20200214
  Receipt Date: 20200214
  Transmission Date: 20200409
  Serious: Yes (Disabling)
  Sender: FDA-Public Use
  Company Number: GB-PFIZER INC-2020062029

PATIENT
  Age: 41 Year
  Sex: Female

DRUGS (3)
  1. QUININE [Interacting]
     Active Substance: QUININE
     Dosage: UNK
     Route: 065
  2. DOXYCYCLINE MONOHYDRATE [Suspect]
     Active Substance: DOXYCYCLINE
     Dosage: UNK (START THE COURSE A FEW DAYS BEFORE TRAVEL )
     Route: 065
  3. DOXYCYCLINE MONOHYDRATE [Interacting]
     Active Substance: DOXYCYCLINE
     Dosage: 1 DF, DAILY
     Route: 065

REACTIONS (5)
  - Drug interaction [Recovered/Resolved]
  - Loss of consciousness [Recovered/Resolved]
  - Malaise [Recovered/Resolved]
  - Headache [Recovered/Resolved]
  - Vomiting [Recovered/Resolved]
